FAERS Safety Report 7329672-9 (Version None)
Quarter: 2011Q1

REPORT INFORMATION
  Report Type: 
  Country: None (occurrence: None)
  Receive Date: 20110303
  Receipt Date: 20110227
  Transmission Date: 20110831
  Serious: No
  Sender: FDA-Public Use
  Company Number: US-TEVA-269050USA

PATIENT
  Sex: Female
  Weight: 60.382 kg

DRUGS (4)
  1. ZOLOFT [Concomitant]
     Indication: DEPRESSION
     Route: 048
  2. KLONOPIN [Concomitant]
     Indication: ANXIETY
     Route: 048
  3. PLAN B ONE-STEP [Suspect]
     Indication: POST COITAL CONTRACEPTION
     Route: 048
     Dates: start: 20110101, end: 20110101
  4. DIPHENHYDRAMINE [Concomitant]
     Indication: INSOMNIA
     Route: 048

REACTIONS (1)
  - MENSTRUATION IRREGULAR [None]
